FAERS Safety Report 24692364 (Version 1)
Quarter: 2024Q4

REPORT INFORMATION
  Report Type: Spontaneous
  Country: AT (occurrence: AT)
  Receive Date: 20241203
  Receipt Date: 20241203
  Transmission Date: 20250114
  Serious: Yes (Hospitalization)
  Sender: AMGEN
  Company Number: AT-AMGEN-AUTSP2024233931

PATIENT
  Age: 47 Year
  Sex: Male

DRUGS (13)
  1. XGEVA [Suspect]
     Active Substance: DENOSUMAB
     Indication: Hypercalcaemia
     Dosage: 120 MILLIGRAM
     Route: 065
     Dates: start: 201801
  2. XGEVA [Suspect]
     Active Substance: DENOSUMAB
     Dosage: 120 MILLIGRAM, QMO
     Route: 065
     Dates: start: 201805
  3. XGEVA [Suspect]
     Active Substance: DENOSUMAB
     Dosage: 60 MILLIGRAM
     Route: 065
  4. XGEVA [Suspect]
     Active Substance: DENOSUMAB
     Dosage: 120 MILLIGRAM, Q3MO
     Route: 065
  5. CINACALCET HYDROCHLORIDE [Suspect]
     Active Substance: CINACALCET HYDROCHLORIDE
     Indication: Hypercalcaemia
     Dosage: 90 MILLIGRAM, BID
     Route: 065
  6. FUROSEMIDE [Concomitant]
     Active Substance: FUROSEMIDE
  7. ZOLEDRONIC ACID [Concomitant]
     Active Substance: ZOLEDRONIC ACID
  8. CALCITONIN [Concomitant]
     Active Substance: CALCITONIN
     Dosage: 100 INTERNATIONAL UNIT, BID
     Route: 058
  9. ATORVASTATIN [Concomitant]
     Active Substance: ATORVASTATIN
     Indication: Hyperlipidaemia
  10. EZETIMIBE [Concomitant]
     Active Substance: EZETIMIBE
     Indication: Hyperlipidaemia
     Dosage: UNK
  11. PANTOPRAZOLE [Concomitant]
     Active Substance: PANTOPRAZOLE
     Indication: Hyperuricaemia
     Dosage: UNK
  12. ALLOPURINOL [Concomitant]
     Active Substance: ALLOPURINOL
     Indication: Hyperuricaemia
     Dosage: UNK
  13. TRIAZOLAM [Concomitant]
     Active Substance: TRIAZOLAM
     Indication: Sleep disorder
     Dosage: UNK

REACTIONS (5)
  - Rebound effect [Recovered/Resolved]
  - Hypercalcaemia [Recovered/Resolved]
  - Blood creatinine increased [Unknown]
  - Therapeutic product effect incomplete [Unknown]
  - Off label use [Unknown]
